FAERS Safety Report 19880909 (Version 1)
Quarter: 2021Q3

REPORT INFORMATION
  Report Type: Report from Study
  Country: US (occurrence: US)
  Receive Date: 20210925
  Receipt Date: 20210925
  Transmission Date: 20211014
  Serious: Yes (Other)
  Sender: FDA-Public Use
  Company Number: US-BRISTOL-MYERS SQUIBB COMPANY-BMS-2021-096038

PATIENT
  Age: 50 Year
  Sex: Male
  Weight: 102.05 kg

DRUGS (5)
  1. CEPHALEXIN [CEFALEXIN] [Concomitant]
     Active Substance: CEPHALEXIN
     Indication: PRODUCT USED FOR UNKNOWN INDICATION
     Dosage: 250 MILLIGRAM
     Route: 065
  2. ANTIBIOTICS [Concomitant]
     Active Substance: UNSPECIFIED INGREDIENT
     Indication: SYNOVIAL RUPTURE
     Dosage: UNK
     Route: 065
  3. APIXABAN [Suspect]
     Active Substance: APIXABAN
     Indication: DEEP VEIN THROMBOSIS
     Dosage: 10MG ONE DOSE
     Route: 065
     Dates: start: 20210721
  4. HYDROCODONE [Concomitant]
     Active Substance: HYDROCODONE
     Indication: SYNOVIAL RUPTURE
     Dosage: AS NEEDED, MAX OF 2 PER DAY
     Route: 065
  5. MULTIVITAMINS [VITAMINS NOS] [Concomitant]
     Active Substance: VITAMINS
     Indication: PRODUCT USED FOR UNKNOWN INDICATION
     Dosage: UNK
     Route: 065

REACTIONS (19)
  - Haematochezia [Unknown]
  - Contusion [Unknown]
  - Haemoptysis [Unknown]
  - Acquired haemophilia [Unknown]
  - Arterial haemorrhage [Unknown]
  - Epistaxis [Unknown]
  - Abdominal pain upper [Unknown]
  - Haemorrhage [Unknown]
  - Spinal cord haematoma [Unknown]
  - Vomiting [Unknown]
  - Anaemia [Unknown]
  - Thrombosis [Unknown]
  - Headache [Unknown]
  - Blood urine present [Unknown]
  - Haematoma [Unknown]
  - Internal haemorrhage [Unknown]
  - Arthralgia [Unknown]
  - Small intestinal haemorrhage [Not Recovered/Not Resolved]
  - Spinal cord injury [Unknown]
